FAERS Safety Report 7436203-1 (Version None)
Quarter: 2011Q2

REPORT INFORMATION
  Report Type: 
  Country: None (occurrence: None)
  Receive Date: 20110425
  Receipt Date: 20110419
  Transmission Date: 20111010
  Serious: Yes (Other)
  Sender: FDA-Public Use
  Company Number: US-RB-026154-11

PATIENT
  Age: 56 Year
  Sex: Male

DRUGS (3)
  1. SUBOXONE [Suspect]
     Indication: DRUG DEPENDENCE
     Dosage: SUBLINGUAL FILM
     Route: 060
     Dates: start: 20110216, end: 20110301
  2. SUBOXONE [Suspect]
     Indication: DRUG DEPENDENCE
     Dosage: 20 - 24 MG
     Route: 060
     Dates: start: 20110301, end: 20110411
  3. BENZODIAZEPINES [Suspect]
     Indication: ANXIETY
     Dosage: DOSING INFORMATION UNKNOWN
     Route: 048
     Dates: end: 20110301

REACTIONS (3)
  - OFF LABEL USE [None]
  - HALLUCINATION [None]
  - DRUG WITHDRAWAL SYNDROME [None]
